FAERS Safety Report 25056057 (Version 1)
Quarter: 2025Q1

REPORT INFORMATION
  Report Type: Spontaneous
  Country: US (occurrence: US)
  Receive Date: 20250309
  Receipt Date: 20250309
  Transmission Date: 20250409
  Serious: Yes (Other)
  Sender: AMGEN
  Company Number: US-AMGEN-USASP2025039905

PATIENT
  Age: 24 Year
  Sex: Male

DRUGS (5)
  1. PREDNISONE [Suspect]
     Active Substance: PREDNISONE
     Indication: Crohn^s disease
     Route: 065
  2. PREDNISONE [Suspect]
     Active Substance: PREDNISONE
     Indication: Diarrhoea
  3. MESALAMINE [Concomitant]
     Active Substance: MESALAMINE
     Indication: Diarrhoea
     Route: 065
  4. MERCAPTOPURINE [Concomitant]
     Active Substance: MERCAPTOPURINE
     Indication: Diarrhoea
     Route: 065
  5. CARBOXYMETHYLCELLULOSE [Concomitant]
     Active Substance: CARBOXYMETHYLCELLULOSE
     Route: 065

REACTIONS (9)
  - Anal fistula [Unknown]
  - Pneumonia aspiration [Unknown]
  - Tracheo-oesophageal fistula [Unknown]
  - Vocal cord paralysis [Unknown]
  - Oesophageal perforation [Unknown]
  - Crohn^s disease [Unknown]
  - Gastrointestinal anastomotic leak [Unknown]
  - Vomiting [Unknown]
  - Nausea [Unknown]
